FAERS Safety Report 14994400 (Version 1)
Quarter: 2018Q2

REPORT INFORMATION
  Report Type: Spontaneous
  Country: US (occurrence: US)
  Receive Date: 20180518
  Receipt Date: 20180518
  Transmission Date: 20180711
  Serious: Yes (Hospitalization)
  Sender: FDA-Public Use
  Company Number: None

PATIENT
  Age: 77 Year
  Sex: Male
  Weight: 75 kg

DRUGS (3)
  1. VELCADE [Suspect]
     Active Substance: BORTEZOMIB
     Dates: end: 20180508
  2. LENALIDOMIDE (CC-5013) [Suspect]
     Active Substance: LENALIDOMIDE
     Dates: end: 20180510
  3. DEXAMETHASONE. [Suspect]
     Active Substance: DEXAMETHASONE
     Dates: end: 20180508

REACTIONS (9)
  - Pyrexia [None]
  - Diarrhoea [None]
  - Proctalgia [None]
  - Asthenia [None]
  - Colitis [None]
  - Abdominal pain [None]
  - Haematochezia [None]
  - Inguinal hernia [None]
  - Small intestinal obstruction [None]

NARRATIVE: CASE EVENT DATE: 20180510
